FAERS Safety Report 7492210-4 (Version None)
Quarter: 2011Q2

REPORT INFORMATION
  Report Type: 
  Country: None (occurrence: None)
  Receive Date: 20110519
  Receipt Date: 20110511
  Transmission Date: 20111010
  Serious: Yes (Hospitalization)
  Sender: FDA-Public Use
  Company Number: SE-GENENTECH-318778

PATIENT

DRUGS (1)
  1. RITUXAN [Suspect]
     Indication: SJOGREN'S SYNDROME
     Dosage: UNK
     Route: 065

REACTIONS (1)
  - SERUM SICKNESS [None]
